FAERS Safety Report 12502990 (Version 1)
Quarter: 2016Q2

REPORT INFORMATION
  Report Type: Report from Study
  Country: US (occurrence: US)
  Receive Date: 20160628
  Receipt Date: 20160628
  Transmission Date: 20160815
  Serious: Yes (Other)
  Sender: FDA-Public Use
  Company Number: US-AMGEN-USASL2016082334

PATIENT
  Age: 41 Year
  Sex: Female

DRUGS (2)
  1. ENBREL [Suspect]
     Active Substance: ETANERCEPT
     Dosage: 50 MG, 2 TIMES/WK
     Route: 065
  2. ENBREL [Suspect]
     Active Substance: ETANERCEPT
     Indication: ANKYLOSING SPONDYLITIS
     Dosage: 50 MG, QWK
     Route: 065
     Dates: start: 20140605

REACTIONS (16)
  - Weight decreased [Unknown]
  - Dry skin [Unknown]
  - Cataract operation [Unknown]
  - Gastrointestinal disorder [Unknown]
  - Head injury [Unknown]
  - Joint fluid drainage [Unknown]
  - Skin lesion [Unknown]
  - Pain [Unknown]
  - Visual impairment [Unknown]
  - Scab [Unknown]
  - Inflammation [Unknown]
  - Urticaria [Unknown]
  - Blister [Unknown]
  - Pruritus [Unknown]
  - Red blood cell sedimentation rate increased [Unknown]
  - Eye disorder [Unknown]

NARRATIVE: CASE EVENT DATE: 2014
